FAERS Safety Report 10169426 (Version 3)
Quarter: 2014Q2

REPORT INFORMATION
  Report Type: Spontaneous
  Country: US (occurrence: US)
  Receive Date: 20140513
  Receipt Date: 20140603
  Transmission Date: 20141212
  Serious: Yes (Other)
  Sender: FDA-Public Use
  Company Number: US-PFIZER INC-2014114362

PATIENT
  Age: 35 Year
  Sex: Female
  Weight: 105.67 kg

DRUGS (6)
  1. LYRICA [Suspect]
     Indication: NEUROPATHY PERIPHERAL
     Dosage: 300 MG, 2X/DAY
     Route: 048
     Dates: start: 2004
  2. LYRICA [Suspect]
     Dosage: 300 MG, 2X/DAY
     Dates: start: 201404
  3. ATENOLOL [Concomitant]
     Indication: HYPERTENSION
     Dosage: 100 MG, DAILY
  4. CYMBALTA [Concomitant]
     Dosage: 60 MG, 1X/DAY
  5. BUTRANS [Concomitant]
     Dosage: 10 UG, WEEKLY
  6. COUMADINE [Concomitant]
     Dosage: 5 MG, UNK

REACTIONS (5)
  - Weight decreased [Unknown]
  - Drug dispensing error [Unknown]
  - Blood glucose increased [Unknown]
  - Dry mouth [Unknown]
  - Thirst [Unknown]
